FAERS Safety Report 23333839 (Version 1)
Quarter: 2023Q4

REPORT INFORMATION
  Report Type: Spontaneous
  Country: PL (occurrence: PL)
  Receive Date: 20231223
  Receipt Date: 20231223
  Transmission Date: 20240110
  Serious: Yes (Hospitalization)
  Sender: FDA-Public Use
  Company Number: PL-JNJFOC-20231246607

PATIENT
  Age: 18 Year
  Sex: Female
  Weight: 50 kg

DRUGS (1)
  1. ACETAMINOPHEN [Suspect]
     Active Substance: ACETAMINOPHEN
     Indication: Product used for unknown indication
     Dosage: ADDITIONAL INFORMATION ON DRUG (CODED)-ABUSE
     Route: 048
     Dates: start: 20210220, end: 20210220

REACTIONS (2)
  - Suicide attempt [Recovering/Resolving]
  - Abdominal pain [Recovering/Resolving]
